FAERS Safety Report 8588521-1 (Version None)
Quarter: 2012Q3

REPORT INFORMATION
  Report Type: 
  Country: None (occurrence: None)
  Receive Date: 20120813
  Receipt Date: 20120808
  Transmission Date: 20120928
  Serious: Yes (Other)
  Sender: FDA-Public Use
  Company Number: US-CELGENEUS-163-21880-12071319

PATIENT
  Sex: Female
  Weight: 77.18 kg

DRUGS (6)
  1. ZYRTEC [Concomitant]
     Route: 065
  2. CALCIUM D [Concomitant]
     Route: 065
  3. BIOTIN [Concomitant]
     Route: 065
  4. FERROUS SULFATE TAB [Concomitant]
     Route: 065
  5. ASACOL [Concomitant]
     Route: 065
  6. REVLIMID [Suspect]
     Indication: LYMPHOMA
     Dosage: 15 MILLIGRAM
     Route: 048
     Dates: start: 20101022

REACTIONS (2)
  - PARAESTHESIA [None]
  - COLITIS [None]
